FAERS Safety Report 22659709 (Version 1)
Quarter: 2023Q2

REPORT INFORMATION
  Report Type: Report from Study
  Country: IT (occurrence: IT)
  Receive Date: 20230630
  Receipt Date: 20230630
  Transmission Date: 20230722
  Serious: Yes (Hospitalization, Other)
  Sender: FDA-Public Use
  Company Number: None

PATIENT

DRUGS (6)
  1. PEGASPARGASE [Suspect]
     Active Substance: PEGASPARGASE
     Indication: Acute lymphocytic leukaemia recurrent
     Dosage: 1390 U/I/ DAY
     Route: 042
     Dates: start: 20230522, end: 20230522
  2. VINCRISTINE [Suspect]
     Active Substance: VINCRISTINE
     Indication: Acute lymphocytic leukaemia recurrent
     Dosage: 2 MG/DAY ON 16 E 22/05/23
     Route: 042
     Dates: start: 20230516, end: 20230522
  3. DEXAMETHASONE [Suspect]
     Active Substance: DEXAMETHASONE
     Indication: Acute lymphocytic leukaemia recurrent
     Dosage: 27 MG/DAY FROM 16/05 TO 20/05, 17 MG/DAY ON 21/05/23
     Route: 042
     Dates: start: 20230516, end: 20230520
  4. PURINETHOL [Suspect]
     Active Substance: MERCAPTOPURINE
     Indication: Acute lymphocytic leukaemia recurrent
     Dosage: 137 MG/DAY
     Route: 048
     Dates: start: 20230516, end: 20230520
  5. METHOTREXATE (METHOTREXATE SODIUM) [Suspect]
     Active Substance: METHOTREXATE SODIUM
     Indication: Acute lymphocytic leukaemia recurrent
     Dosage: 139 MG INFUSION IN 30 MIN. + 1251 MG INFUSION IV FOR 23,5 H FROM 16 TO 17/05/23
     Route: 042
     Dates: start: 20230516, end: 20230517
  6. CYTARABINE [Suspect]
     Active Substance: CYTARABINE
     Indication: Acute lymphocytic leukaemia recurrent
     Dosage: 2782 MG X 2 IV ON 20/05/23
     Route: 042
     Dates: start: 20230520, end: 20230520

REACTIONS (5)
  - Pancytopenia [Recovering/Resolving]
  - Febrile neutropenia [Recovered/Resolved]
  - Klebsiella infection [Recovered/Resolved]
  - Hypertransaminasaemia [Recovering/Resolving]
  - Gamma-glutamyltransferase increased [Recovering/Resolving]

NARRATIVE: CASE EVENT DATE: 20230522
